FAERS Safety Report 18571817 (Version 1)
Quarter: 2020Q4

REPORT INFORMATION
  Report Type: Spontaneous
  Country: US (occurrence: US)
  Receive Date: 20201202
  Receipt Date: 20201202
  Transmission Date: 20210114
  Serious: No
  Sender: FDA-Public Use
  Company Number: US-ASTRAZENECA-2020SF47589

PATIENT
  Age: 937 Month
  Sex: Female
  Weight: 81.2 kg

DRUGS (1)
  1. FASLODEX [Suspect]
     Active Substance: FULVESTRANT
     Indication: BREAST CANCER
     Route: 030
     Dates: start: 201802, end: 202001

REACTIONS (1)
  - Skin mass [Not Recovered/Not Resolved]

NARRATIVE: CASE EVENT DATE: 201908
